FAERS Safety Report 13575251 (Version 1)
Quarter: 2017Q2

REPORT INFORMATION
  Report Type: Report from Study
  Country: None (occurrence: BR)
  Receive Date: 20170524
  Receipt Date: 20170524
  Transmission Date: 20170830
  Serious: Yes (Other)
  Sender: FDA-Public Use
  Company Number: BR-ABBVIE-17K-020-1983013-00

PATIENT
  Sex: Female
  Weight: 67 kg

DRUGS (3)
  1. HUMIRA [Suspect]
     Active Substance: ADALIMUMAB
     Indication: ANKYLOSING SPONDYLITIS
     Route: 058
     Dates: start: 20130111
  2. SERTRALINE [Concomitant]
     Active Substance: SERTRALINE HYDROCHLORIDE
     Indication: PRODUCT USED FOR UNKNOWN INDICATION
  3. FOLIC ACID. [Concomitant]
     Active Substance: FOLIC ACID
     Indication: PRODUCT USED FOR UNKNOWN INDICATION
     Route: 048
     Dates: start: 2013

REACTIONS (30)
  - Muscle atrophy [Recovering/Resolving]
  - Synovitis [Recovering/Resolving]
  - Inflammation [Unknown]
  - Joint dislocation [Not Recovered/Not Resolved]
  - Weight increased [Not Recovered/Not Resolved]
  - Mobility decreased [Unknown]
  - Pain in extremity [Recovering/Resolving]
  - Bone marrow oedema [Recovered/Resolved]
  - Pain in extremity [Recovered/Resolved]
  - Coccydynia [Unknown]
  - Adverse event [Unknown]
  - Loose body in joint [Not Recovered/Not Resolved]
  - Tendonitis [Recovering/Resolving]
  - Gait disturbance [Unknown]
  - Osteosclerosis [Unknown]
  - Inflammation [Recovering/Resolving]
  - Muscular weakness [Unknown]
  - Sacroiliitis [Recovering/Resolving]
  - Panic disorder [Unknown]
  - Spinal deformity [Unknown]
  - Osteoarthritis [Unknown]
  - Arthralgia [Recovering/Resolving]
  - Pain in extremity [Recovering/Resolving]
  - Bursitis [Recovering/Resolving]
  - Crying [Unknown]
  - Joint range of motion decreased [Unknown]
  - Spinal pain [Recovering/Resolving]
  - Arthritis [Unknown]
  - Depressed mood [Unknown]
  - Arthralgia [Recovering/Resolving]

NARRATIVE: CASE EVENT DATE: 2013
